FAERS Safety Report 7313008-3 (Version None)
Quarter: 2011Q1

REPORT INFORMATION
  Report Type: 
  Country: None (occurrence: None)
  Receive Date: 20110225
  Receipt Date: 20110216
  Transmission Date: 20110831
  Serious: Yes (Hospitalization)
  Sender: FDA-Public Use
  Company Number: US-BIOGENIDEC-2010BI023304

PATIENT
  Age: 38 Year
  Sex: Female

DRUGS (2)
  1. AVONEX [Concomitant]
     Indication: MULTIPLE SCLEROSIS
     Route: 030
     Dates: start: 20050731
  2. TYSABRI [Suspect]
     Indication: MULTIPLE SCLEROSIS
     Route: 042
     Dates: start: 20071022, end: 20101227

REACTIONS (7)
  - NEPHROLITHIASIS [None]
  - SELECTIVE IGG SUBCLASS DEFICIENCY [None]
  - DYSPNOEA [None]
  - PROCEDURAL PAIN [None]
  - POSTOPERATIVE FEVER [None]
  - SPLENOMEGALY [None]
  - COGNITIVE DISORDER [None]
